FAERS Safety Report 4514622-0 (Version None)
Quarter: 2004Q3

REPORT INFORMATION
  Report Type: 
  Country: None (occurrence: None)
  Receive Date: 20040927
  Receipt Date: 20040414
  Transmission Date: 20050211
  Serious: No
  Sender: FDA-Public Use
  Company Number: US072682

PATIENT
  Age: 61 Year
  Sex: Female
  Weight: 80.8 kg

DRUGS (13)
  1. NEULASTA [Suspect]
     Indication: CHEMOTHERAPY
     Dosage: 6 MG, 1 IN 1 DAYS, SC
     Route: 058
     Dates: start: 20040403, end: 20040403
  2. NEUPOGEN [Suspect]
     Indication: CHEMOTHERAPY
     Dosage: 480 MCG, 1 IN 1 DAYS, SC
     Route: 058
     Dates: start: 20040324, end: 20040328
  3. CISPLATIN [Concomitant]
  4. ETOPOSIDE [Concomitant]
  5. PROCHLORPERAZINE EDISYLATE [Concomitant]
  6. GRANISETRON HCL [Concomitant]
  7. DEXAMETHASONE [Concomitant]
  8. FUROSEMIDE [Concomitant]
  9. LISINOPRIL AND HYDROCHLOROTHIAZIDE [Concomitant]
  10. ATORVASTATIN CALCIUM [Concomitant]
  11. PANTOPRAZOLE SODIUM [Concomitant]
  12. MULTI-VITAMINS [Concomitant]
  13. METHYLCELLULOSE [Concomitant]

REACTIONS (2)
  - ERYTHEMA NODOSUM [None]
  - SKIN NODULE [None]
